FAERS Safety Report 9005510 (Version 1)
Quarter: 2013Q1

REPORT INFORMATION
  Report Type: Spontaneous
  Country: US (occurrence: US)
  Receive Date: 20130109
  Receipt Date: 20130109
  Transmission Date: 20140127
  Serious: No
  Sender: FDA-Public Use
  Company Number: US-009507513-1301USA001799

PATIENT
  Age: 50 Year
  Sex: Male
  Weight: 75.28 kg

DRUGS (4)
  1. VICTRELIS [Suspect]
     Dosage: 800 MG, TID
     Route: 048
  2. PEGASYS [Suspect]
     Route: 058
  3. RIBAPAK [Suspect]
     Dosage: UNK, QD
     Route: 048
  4. LISINOPRIL [Concomitant]
     Route: 048

REACTIONS (1)
  - Haemoglobin decreased [Unknown]
